FAERS Safety Report 9412653 (Version 3)
Quarter: 2014Q2

REPORT INFORMATION
  Report Type: Report from Study
  Country: ES (occurrence: ES)
  Receive Date: 20130722
  Receipt Date: 20140415
  Transmission Date: 20141212
  Serious: Yes (Other)
  Sender: FDA-Public Use
  Company Number: ES-CELGENEUS-144-21660-13071070

PATIENT
  Age: 69 Year
  Sex: Female

DRUGS (5)
  1. ABRAXANE [Suspect]
     Route: 041
  2. PAROXETINE [Concomitant]
     Indication: DEPRESSION
     Dosage: 10 MILLIGRAM
     Route: 065
  3. INDAPAMIDE [Concomitant]
     Indication: HYPERTENSION
     Dosage: 1.5 MILLIGRAM
  4. ABRAXANE [Suspect]
     Indication: BREAST CANCER
     Route: 041
     Dates: start: 20120712, end: 20120929
  5. ABRAXANE [Suspect]
     Route: 041
     Dates: start: 20120726

REACTIONS (1)
  - Peripheral sensory neuropathy [Unknown]
